FAERS Safety Report 7426824-4 (Version None)
Quarter: 2011Q2

REPORT INFORMATION
  Report Type: 
  Country: None (occurrence: None)
  Receive Date: 20110418
  Receipt Date: 20110331
  Transmission Date: 20111010
  Serious: Yes (Other)
  Sender: FDA-Public Use
  Company Number: 2011-0789

PATIENT
  Age: 4 Year
  Sex: Male
  Weight: 12.7 kg

DRUGS (4)
  1. INCRELEX [Suspect]
     Indication: DWARFISM
     Dosage: 2.4 MG (1.2 MG, 2 IN 1 D), PARENTERAL; 1.2 MG (0.6 MG, 2 IN 1 D), PARENTERAL
     Route: 051
     Dates: start: 20110304, end: 20110315
  2. INCRELEX [Suspect]
     Indication: DWARFISM
     Dosage: 2.4 MG (1.2 MG, 2 IN 1 D), PARENTERAL; 1.2 MG (0.6 MG, 2 IN 1 D), PARENTERAL
     Route: 051
     Dates: start: 20110218, end: 20110303
  3. MULTIVITAMIN (MULTIVITAMIN /00831701/) [Concomitant]
  4. MELATONIN (MELATONIN) [Concomitant]

REACTIONS (1)
  - VIITH NERVE PARALYSIS [None]
